FAERS Safety Report 8437583-0 (Version None)
Quarter: 2012Q2

REPORT INFORMATION
  Report Type: 
  Country: None (occurrence: None)
  Receive Date: 20120614
  Receipt Date: 20120410
  Transmission Date: 20120825
  Serious: Yes (Other)
  Sender: FDA-Public Use
  Company Number: US-AMGEN-USASP2012017787

PATIENT
  Age: 67 Year
  Sex: Female
  Weight: 48.526 kg

DRUGS (10)
  1. PROLIA [Suspect]
     Indication: OSTEOPOROSIS POSTMENOPAUSAL
     Dosage: 60 MG, ONE TIME DOSE
     Dates: start: 20120207, end: 20120207
  2. B-COMPLEX                          /00003501/ [Concomitant]
     Dosage: UNK
     Route: 048
  3. GLUCOSAMINE CHONDROITIN COMPLEX    /06278301/ [Concomitant]
     Dosage: UNK
  4. LIDODERM [Concomitant]
     Dosage: UNK UNK, PRN
     Route: 062
  5. ACIDOPHILUS [Concomitant]
     Dosage: UNK UNK, PRN
  6. CLARITIN                           /00917501/ [Concomitant]
     Dosage: 10 MG, QD
     Route: 048
  7. SUDAFED S.A. [Concomitant]
     Dosage: 30 MG, Q6H
     Route: 048
  8. IPRATROPIUM BROMIDE [Concomitant]
     Dosage: 0.02 %, TID
     Route: 045
  9. SELENIUM [Concomitant]
     Dosage: 200 MUG, QD
     Route: 048
  10. LORATADINE [Concomitant]
     Dosage: 10 MG, UNK
     Route: 048

REACTIONS (1)
  - HYPOCALCAEMIA [None]
